FAERS Safety Report 19362177 (Version 2)
Quarter: 2021Q2

REPORT INFORMATION
  Report Type: Report from Study
  Country: KR (occurrence: KR)
  Receive Date: 20210603
  Receipt Date: 20210616
  Transmission Date: 20210717
  Serious: Yes (Other)
  Sender: FDA-Public Use
  Company Number: KR-AMGEN INC.-KORCT2021084149

PATIENT
  Age: 65 Year
  Sex: Male

DRUGS (35)
  1. CANDESARTAN. [Concomitant]
     Active Substance: CANDESARTAN
     Indication: PRODUCT USED FOR UNKNOWN INDICATION
     Dosage: 1 DOSAGE FORM, QD
     Dates: start: 20180816
  2. GRANISETRON [Concomitant]
     Active Substance: GRANISETRON
     Dosage: 1 UNK, QD
     Dates: start: 20181002, end: 20181002
  3. FILGRASTIM [Suspect]
     Active Substance: FILGRASTIM
     Dosage: 1 UNK, QD
     Route: 065
     Dates: start: 20181015, end: 20181015
  4. OLARATUMAB [Concomitant]
     Active Substance: OLARATUMAB
     Dosage: UNK, QD
     Dates: start: 20180917
  5. CHLORPHENAMINE [Concomitant]
     Active Substance: CHLORPHENIRAMINE MALEATE
     Dosage: 4 MILLIGRAM, QD
     Dates: start: 20181002
  6. DEXAMETHASONE. [Concomitant]
     Active Substance: DEXAMETHASONE
     Dosage: 10 MILLIGRAM, QD
     Dates: start: 20181002
  7. GRANISETRON [Concomitant]
     Active Substance: GRANISETRON
     Indication: PRODUCT USED FOR UNKNOWN INDICATION
     Dosage: 1 UNK, QD
     Dates: start: 20180910, end: 20180910
  8. OLARATUMAB [Concomitant]
     Active Substance: OLARATUMAB
     Dosage: UNK, QD
     Dates: start: 20181002
  9. OLARATUMAB [Concomitant]
     Active Substance: OLARATUMAB
     Dosage: UNK, QD
     Dates: start: 20181026
  10. CARVEDILOL. [Concomitant]
     Active Substance: CARVEDILOL
     Indication: PRODUCT USED FOR UNKNOWN INDICATION
     Dosage: 1 DOSAGE FORM, QD
     Dates: start: 20180816, end: 20181001
  11. OXYCODONE/NALOXONE RATIOPHARM [Concomitant]
     Indication: PRODUCT USED FOR UNKNOWN INDICATION
     Dosage: 1 DOSAGE FORM, QD
     Dates: start: 20180910
  12. PARACETAMOL [Concomitant]
     Active Substance: ACETAMINOPHEN
     Indication: PRODUCT USED FOR UNKNOWN INDICATION
     Dosage: 1 DOSAGE FORM, QD
     Dates: start: 20180817
  13. FILGRASTIM [Suspect]
     Active Substance: FILGRASTIM
     Indication: PRODUCT USED FOR UNKNOWN INDICATION
     Dosage: 1 UNK, QD
     Route: 065
     Dates: start: 20181010, end: 20181010
  14. CHLORPHENAMINE [Concomitant]
     Active Substance: CHLORPHENIRAMINE MALEATE
     Dosage: 4 MILLIGRAM, QD
     Dates: start: 20180917
  15. DEXAMETHASONE. [Concomitant]
     Active Substance: DEXAMETHASONE
     Indication: PRODUCT USED FOR UNKNOWN INDICATION
     Dosage: 10 MILLIGRAM, QD
     Dates: start: 20180910
  16. DOXORUBICIN [Concomitant]
     Active Substance: DOXORUBICIN
     Dosage: 75 UNK, QD
     Dates: start: 20181002
  17. MAGNESIUM OXIDE. [Concomitant]
     Active Substance: MAGNESIUM OXIDE
     Indication: PRODUCT USED FOR UNKNOWN INDICATION
     Dosage: 1 DOSAGE FORM, QD
     Dates: start: 20180910, end: 20181001
  18. METOCLOPRAMIDE. [Concomitant]
     Active Substance: METOCLOPRAMIDE
     Dosage: 30 MILLIGRAM, QD
     Dates: start: 20181026
  19. OLARATUMAB [Concomitant]
     Active Substance: OLARATUMAB
     Indication: PRODUCT USED FOR UNKNOWN INDICATION
     Dosage: UNK, QD
     Dates: start: 20180910
  20. OLARATUMAB [Concomitant]
     Active Substance: OLARATUMAB
     Dosage: UNK, QD
     Dates: start: 20181017
  21. ATORVASTATIN [Concomitant]
     Active Substance: ATORVASTATIN
     Indication: PRODUCT USED FOR UNKNOWN INDICATION
     Dosage: 1 DOSAGE FORM, QD
     Dates: start: 20180816
  22. DEXAMETHASONE. [Concomitant]
     Active Substance: DEXAMETHASONE
     Dosage: 10 MILLIGRAM, QD
     Dates: start: 20181026
  23. DOXORUBICIN [Concomitant]
     Active Substance: DOXORUBICIN
     Indication: PRODUCT USED FOR UNKNOWN INDICATION
     Dosage: 56.2 UNK, QD
     Dates: start: 20181026
  24. DOXORUBICIN [Concomitant]
     Active Substance: DOXORUBICIN
     Dosage: 75 UNK, QD
     Dates: start: 20180910
  25. CHLORPHENAMINE [Concomitant]
     Active Substance: CHLORPHENIRAMINE MALEATE
     Dosage: 4 MILLIGRAM, QD
     Dates: start: 20181017
  26. CHLORPHENAMINE [Concomitant]
     Active Substance: CHLORPHENIRAMINE MALEATE
     Dosage: 4 MILLIGRAM, QD
     Dates: start: 20181026
  27. DEXAMETHASONE. [Concomitant]
     Active Substance: DEXAMETHASONE
     Dosage: 10 MILLIGRAM, QD
     Dates: start: 20180917
  28. METOCLOPRAMIDE. [Concomitant]
     Active Substance: METOCLOPRAMIDE
     Indication: PRODUCT USED FOR UNKNOWN INDICATION
     Dosage: 30 MILLIGRAM, QD
     Dates: start: 20180910
  29. METOCLOPRAMIDE. [Concomitant]
     Active Substance: METOCLOPRAMIDE
     Dosage: 30 MILLIGRAM, QD
     Dates: start: 20181002
  30. OXYCODONE [Concomitant]
     Active Substance: OXYCODONE
     Indication: PRODUCT USED FOR UNKNOWN INDICATION
     Dosage: 1 DOSAGE FORM, QD
     Dates: start: 20180814, end: 20190122
  31. CHLORPHENAMINE [Concomitant]
     Active Substance: CHLORPHENIRAMINE MALEATE
     Indication: PRODUCT USED FOR UNKNOWN INDICATION
     Dosage: 4 MILLIGRAM, QD
     Dates: start: 20180910
  32. DEXAMETHASONE. [Concomitant]
     Active Substance: DEXAMETHASONE
     Dosage: 10 MILLIGRAM, QD
     Dates: start: 20181017
  33. MAGNESIUM OXIDE. [Concomitant]
     Active Substance: MAGNESIUM OXIDE
     Dosage: 1 DOSAGE FORM, QD
     Dates: start: 20181112
  34. METOCLOPRAMIDE. [Concomitant]
     Active Substance: METOCLOPRAMIDE
     Dosage: 30 MILLIGRAM, QD
     Dates: start: 20180917
  35. METOCLOPRAMIDE. [Concomitant]
     Active Substance: METOCLOPRAMIDE
     Dosage: 30 MILLIGRAM, QD
     Dates: start: 20181017

REACTIONS (2)
  - Pneumonia [Recovered/Resolved]
  - Neutrophil count decreased [Recovered/Resolved]

NARRATIVE: CASE EVENT DATE: 20181010
